FAERS Safety Report 7113369-4 (Version None)
Quarter: 2010Q4

REPORT INFORMATION
  Report Type: 
  Country: None (occurrence: None)
  Receive Date: 20101119
  Receipt Date: 20101116
  Transmission Date: 20110411
  Serious: Yes (Death)
  Sender: FDA-Public Use
  Company Number: JP-GENENTECH-309786

PATIENT
  Sex: Female

DRUGS (6)
  1. GRTPA [Suspect]
     Indication: CEREBRAL INFARCTION
     Dosage: 26.1 ML, UNK
     Route: 042
     Dates: start: 20081119, end: 20081119
  2. RADICUT [Concomitant]
     Indication: PRODUCT USED FOR UNKNOWN INDICATION
     Dosage: 60 MG, UNK
     Route: 041
     Dates: start: 20081119, end: 20081121
  3. OMEPRAL [Suspect]
     Indication: PRODUCT USED FOR UNKNOWN INDICATION
     Dosage: 20 MG, UNK
     Route: 042
     Dates: start: 20081119, end: 20081121
  4. GASTER [Suspect]
     Indication: PRODUCT USED FOR UNKNOWN INDICATION
     Dosage: UNK
     Dates: start: 20081119, end: 20081119
  5. PERDIPINE [Suspect]
     Indication: PRODUCT USED FOR UNKNOWN INDICATION
  6. CEFOTIAM HCL [Concomitant]
     Indication: PRODUCT USED FOR UNKNOWN INDICATION
     Dosage: 1 G, UNK
     Route: 042
     Dates: start: 20081121, end: 20081121

REACTIONS (1)
  - AORTIC DISSECTION [None]
